FAERS Safety Report 5387177-9 (Version None)
Quarter: 2007Q3

REPORT INFORMATION
  Report Type: 
  Country: None (occurrence: None)
  Receive Date: 20070711
  Receipt Date: 20070628
  Transmission Date: 20080115
  Serious: Yes (Other)
  Sender: FDA-Public Use
  Company Number: 2007US-08358

PATIENT
  Sex: Female

DRUGS (1)
  1. ISOTRETINOIN [Suspect]
     Indication: DRUG USE FOR UNKNOWN INDICATION

REACTIONS (6)
  - BONE PAIN [None]
  - BURNING SENSATION [None]
  - CARDIAC DISORDER [None]
  - EAR CONGESTION [None]
  - HEADACHE [None]
  - VISION BLURRED [None]
